FAERS Safety Report 15597350 (Version 1)
Quarter: 2018Q4

REPORT INFORMATION
  Report Type: Spontaneous
  Country: US (occurrence: US)
  Receive Date: 20181102
  Receipt Date: 20181102
  Transmission Date: 20190205
  Serious: No
  Sender: FDA-Public Use
  Company Number: None

PATIENT
  Age: 52 Year
  Sex: Female

DRUGS (2)
  1. FASLODEX [Suspect]
     Active Substance: FULVESTRANT
     Dates: start: 20180709
  2. IBRANCE [Concomitant]
     Active Substance: PALBOCICLIB

REACTIONS (5)
  - Neuropathy peripheral [None]
  - Urticaria [None]
  - Injection site hypoaesthesia [None]
  - Injection site mass [None]
  - Injection site reaction [None]

NARRATIVE: CASE EVENT DATE: 20181101
